FAERS Safety Report 4687070-0 (Version None)
Quarter: 2005Q2

REPORT INFORMATION
  Report Type: 
  Country: None (occurrence: None)
  Receive Date: 20050608
  Receipt Date: 20050525
  Transmission Date: 20051028
  Serious: Yes (Other)
  Sender: FDA-Public Use
  Company Number: 2005063042

PATIENT
  Age: 67 Year
  Sex: Male
  Weight: 108.8633 kg

DRUGS (6)
  1. BEXTRA [Suspect]
     Indication: ARTHRALGIA
     Dosage: 20 MG (20 MG, 1 IN 1 D), ORAL
     Route: 048
     Dates: start: 20050201
  2. AMARYL [Concomitant]
  3. LOPRESSOR [Concomitant]
  4. PAROXETINE HCL [Concomitant]
  5. TOPROL (METOPROLOL) [Concomitant]
  6. ACTOS [Concomitant]

REACTIONS (3)
  - DEEP VEIN THROMBOSIS [None]
  - MEDICATION ERROR [None]
  - PHARMACEUTICAL PRODUCT COMPLAINT [None]
